FAERS Safety Report 21639918 (Version 2)
Quarter: 2023Q1

REPORT INFORMATION
  Report Type: Spontaneous
  Country: US (occurrence: US)
  Receive Date: 20221124
  Receipt Date: 20230220
  Transmission Date: 20230417
  Serious: Yes (Hospitalization, Other)
  Sender: FDA-Public Use
  Company Number: US-BRISTOL-MYERS SQUIBB COMPANY-2022-142876

PATIENT
  Sex: Female

DRUGS (2)
  1. OPDIVO [Suspect]
     Active Substance: NIVOLUMAB
     Indication: Metastatic renal cell carcinoma
     Dosage: DOSE : 3
  2. YERVOY [Suspect]
     Active Substance: IPILIMUMAB
     Indication: Metastatic renal cell carcinoma
     Dosage: DOSE: 3

REACTIONS (11)
  - Colitis [Recovering/Resolving]
  - Cellulitis [Unknown]
  - Somnolence [Recovering/Resolving]
  - Lethargy [Unknown]
  - Oral candidiasis [Unknown]
  - Asthenia [Unknown]
  - Oedema [Unknown]
  - Thyroid disorder [Unknown]
  - Dyspepsia [Unknown]
  - Vomiting [Unknown]
  - Dysstasia [Unknown]
